FAERS Safety Report 4369047-8 (Version None)
Quarter: 2004Q2

REPORT INFORMATION
  Report Type: 
  Country: None (occurrence: None)
  Receive Date: 20040527
  Receipt Date: 20040519
  Transmission Date: 20050107
  Serious: Yes (Death, Hospitalization)
  Sender: FDA-Public Use
  Company Number: 2004-01820

PATIENT
  Age: 57 Year
  Sex: Female

DRUGS (4)
  1. NORCO [Suspect]
     Indication: POLYNEUROPATHY
     Dosage: 2 TABLET, Q4-6H, ORAL
     Route: 048
     Dates: start: 20020108
  2. CELEBREX [Suspect]
     Indication: POLYNEUROPATHY
     Dosage: 200 MG, BID, ORAL
     Route: 048
     Dates: start: 20020108
  3. OXYCONTIN [Suspect]
     Indication: POLYNEUROPATHY
     Dosage: 40 MG, Q12H, ORAL
     Route: 048
     Dates: start: 20020108
  4. PREMARIN [Suspect]
     Dosage: 0.9 MG, DAILY, ORAL
     Route: 048
     Dates: start: 20020108

REACTIONS (8)
  - CONFUSIONAL STATE [None]
  - HAEMORRHAGE [None]
  - HEART RATE INCREASED [None]
  - INFLAMMATION [None]
  - PAIN [None]
  - PANCREATITIS [None]
  - PEPTIC ULCER [None]
  - SHOCK [None]
